FAERS Safety Report 4473654-1 (Version None)
Quarter: 2004Q4

REPORT INFORMATION
  Report Type: 
  Country: None (occurrence: None)
  Receive Date: 20041013
  Receipt Date: 20041005
  Transmission Date: 20050328
  Serious: Yes (Life-Threatening)
  Sender: FDA-Public Use
  Company Number: US-MERCK-0410USA00730

PATIENT
  Age: 45 Year
  Sex: Female

DRUGS (1)
  1. VIOXX [Suspect]
     Indication: LOWER LIMB FRACTURE
     Route: 048
     Dates: start: 20010101

REACTIONS (2)
  - CARCINOMA [None]
  - OEDEMA PERIPHERAL [None]
